FAERS Safety Report 7573794-4 (Version None)
Quarter: 2011Q2

REPORT INFORMATION
  Report Type: 
  Country: None (occurrence: None)
  Receive Date: 20110627
  Receipt Date: 20110617
  Transmission Date: 20111010
  Serious: Yes (Hospitalization)
  Sender: FDA-Public Use
  Company Number: JP-SANOFI-AVENTIS-2011SA032671

PATIENT
  Age: 68 Year
  Sex: Male
  Weight: 56.9 kg

DRUGS (8)
  1. TRICHLORMETHIAZIDE [Suspect]
     Indication: MYOCARDIAL INFARCTION
     Route: 048
     Dates: start: 20101201, end: 20110301
  2. CARVEDILOL [Suspect]
     Indication: MYOCARDIAL INFARCTION
     Route: 048
     Dates: start: 20101201
  3. SIGMART [Suspect]
     Indication: MYOCARDIAL INFARCTION
     Route: 048
     Dates: start: 20101201, end: 20110407
  4. LIPITOR [Suspect]
     Indication: MYOCARDIAL INFARCTION
     Route: 048
     Dates: start: 20101201
  5. LANSOPRAZOLE [Suspect]
     Indication: MYOCARDIAL INFARCTION
     Route: 048
     Dates: start: 20101201, end: 20110407
  6. LASIX [Suspect]
     Indication: CARDIAC FAILURE
     Route: 048
     Dates: start: 20101201
  7. PLAVIX [Suspect]
     Indication: MYOCARDIAL INFARCTION
     Route: 048
     Dates: start: 20101201, end: 20110407
  8. ASPIRIN [Suspect]
     Indication: MYOCARDIAL INFARCTION
     Route: 048
     Dates: start: 20101201

REACTIONS (1)
  - INTERSTITIAL LUNG DISEASE [None]
